FAERS Safety Report 14345036 (Version 1)
Quarter: 2018Q1

REPORT INFORMATION
  Report Type: Spontaneous
  Country: US (occurrence: US)
  Receive Date: 20180103
  Receipt Date: 20180103
  Transmission Date: 20180509
  Serious: Yes (Other)
  Sender: FDA-Public Use
  Company Number: US-ASTRAZENECA-2017SF32702

PATIENT
  Sex: Female
  Weight: 97.1 kg

DRUGS (13)
  1. HUMALOG [Concomitant]
     Active Substance: INSULIN LISPRO
  2. LIPITOR [Concomitant]
     Active Substance: ATORVASTATIN CALCIUM
  3. LANTUS [Concomitant]
     Active Substance: INSULIN GLARGINE
     Dosage: EVERY DAY
  4. COREG [Concomitant]
     Active Substance: CARVEDILOL
     Indication: CARDIAC DISORDER
     Route: 048
  5. COSOPT [Concomitant]
     Active Substance: DORZOLAMIDE HYDROCHLORIDE\TIMOLOL MALEATE
     Dosage: 22.3MG, 1 DROP IN BOTH EYES, TWO TIMES A DAY
     Route: 031
  6. WARFARIN [Concomitant]
     Active Substance: WARFARIN
  7. MULTIVITAMIN CENTRUM SILVER [Concomitant]
     Dosage: EVERY DAY
     Route: 048
  8. BABY ASPIRIN [Concomitant]
     Active Substance: ASPIRIN
     Route: 048
  9. COQ 10 [Concomitant]
     Active Substance: UBIDECARENONE
     Route: 002
  10. BYDUREON [Suspect]
     Active Substance: EXENATIDE
     Indication: BLOOD GLUCOSE ABNORMAL
     Route: 058
  11. LASIX [Concomitant]
     Active Substance: FUROSEMIDE
     Route: 048
  12. TYLENOL [Concomitant]
     Active Substance: ACETAMINOPHEN
     Dosage: 325.0MG AS REQUIRED
     Route: 048
  13. PRIMIDONE. [Concomitant]
     Active Substance: PRIMIDONE
     Route: 031

REACTIONS (2)
  - Device issue [Unknown]
  - Renal failure [Not Recovered/Not Resolved]
